FAERS Safety Report 4704030-1 (Version None)
Quarter: 2005Q2

REPORT INFORMATION
  Report Type: 
  Country: None (occurrence: None)
  Receive Date: 20050629
  Receipt Date: 20050614
  Transmission Date: 20051028
  Serious: No
  Sender: FDA-Public Use
  Company Number: 11603

PATIENT
  Age: 29 Year
  Sex: Female

DRUGS (4)
  1. CARBOPLATIN [Suspect]
     Indication: BENIGN HYDATIDIFORM MOLE
     Dosage: 400 MG/M2 TOTAL
  2. ETOPOSIDE [Suspect]
     Indication: BENIGN HYDATIDIFORM MOLE
     Dosage: 120 MG/M2 TOTAL
  3. BLEOMYCIN [Suspect]
     Indication: BENIGN HYDATIDIFORM MOLE
     Dosage: 60 MG/M2 TOTAL
  4. METHOTREXATE [Suspect]
     Indication: BENIGN HYDATIDIFORM MOLE
     Dosage: 800 MG/M2 TOTAL

REACTIONS (1)
  - ACUTE PROMYELOCYTIC LEUKAEMIA [None]
